FAERS Safety Report 12894193 (Version 3)
Quarter: 2016Q4

REPORT INFORMATION
  Report Type: Spontaneous
  Country: US (occurrence: US)
  Receive Date: 20161028
  Receipt Date: 20161208
  Transmission Date: 20170207
  Serious: Yes (Hospitalization)
  Sender: FDA-Public Use
  Company Number: US-SAOL THERAPEUTICS-2016SAO00933

PATIENT
  Age: 48 Year
  Sex: Male
  Weight: 88.44 kg

DRUGS (17)
  1. MARCAINE [Suspect]
     Active Substance: BUPIVACAINE HYDROCHLORIDE
     Dosage: 13.128 MG, \DAY
  2. RELISTOR [Suspect]
     Active Substance: METHYLNALTREXONE BROMIDE
     Dosage: UNK
     Dates: start: 20161016
  3. BACLOFEN. [Suspect]
     Active Substance: BACLOFEN
     Indication: COMPLEX REGIONAL PAIN SYNDROME
  4. TRUVADA [Concomitant]
     Active Substance: EMTRICITABINE\TENOFOVIR DISOPROXIL FUMARATE
  5. CLONIDINE. [Suspect]
     Active Substance: CLONIDINE
     Dosage: 131.28 ?G, \DAY
  6. LEVITRA [Concomitant]
     Active Substance: VARDENAFIL HYDROCHLORIDE TRIHYDRATE
  7. PREZISTA [Concomitant]
     Active Substance: DARUNAVIR ETHANOLATE
  8. SELZENTRY [Concomitant]
     Active Substance: MARAVIROC
  9. BACLOFEN. [Suspect]
     Active Substance: BACLOFEN
     Indication: PAIN
     Dosage: 131.28 ?G, \DAY
  10. LOPRESSOR [Concomitant]
     Active Substance: METOPROLOL TARTRATE
  11. DILAUDID [Suspect]
     Active Substance: HYDROMORPHONE HYDROCHLORIDE
     Dosage: 5.251 MG, \DAY
  12. ROXANOL [Concomitant]
     Active Substance: MORPHINE SULFATE
     Route: 048
  13. XANAX [Concomitant]
     Active Substance: ALPRAZOLAM
     Route: 048
  14. PROAIR HFA [Concomitant]
     Active Substance: ALBUTEROL SULFATE
  15. NORVIR [Concomitant]
     Active Substance: RITONAVIR
  16. FENTANYL. [Suspect]
     Active Substance: FENTANYL
     Dosage: 262.56 ?G, \DAY
  17. ZOFRAN [Concomitant]
     Active Substance: ONDANSETRON HYDROCHLORIDE

REACTIONS (8)
  - Pain [Unknown]
  - Off label use [Unknown]
  - Nerve injury [Recovered/Resolved]
  - Drug withdrawal syndrome [Unknown]
  - Neuralgia [Recovered/Resolved]
  - Rash [Unknown]
  - Constipation [Unknown]
  - Device failure [Unknown]

NARRATIVE: CASE EVENT DATE: 2016
